FAERS Safety Report 7261018-7 (Version None)
Quarter: 2011Q1

REPORT INFORMATION
  Report Type: 
  Country: None (occurrence: None)
  Receive Date: 20110130
  Receipt Date: 20101123
  Transmission Date: 20110831
  Serious: No
  Sender: FDA-Public Use
  Company Number: US-ABBOTT-10P-163-0687564-00

PATIENT
  Age: 58 Year
  Sex: Female

DRUGS (7)
  1. LEXIPRIL [Concomitant]
     Indication: DEPRESSION
     Dosage: 1/2 TABLET
  2. ADACAN [Concomitant]
     Indication: HYPERTENSION
  3. ADVAIR [Concomitant]
     Indication: ASTHMA
     Route: 055
  4. SALICYLATE [Concomitant]
     Indication: ARTHRITIS
  5. HUMIRA [Suspect]
     Indication: PSORIATIC ARTHROPATHY
     Dates: end: 20101028
  6. GABAPENTIN [Concomitant]
     Indication: NEURALGIA
     Dosage: IN THE EVENING
  7. OMEPRAZOLE [Concomitant]
     Indication: HIATUS HERNIA

REACTIONS (2)
  - PAIN IN JAW [None]
  - SENSITIVITY OF TEETH [None]
